FAERS Safety Report 6675144-4 (Version None)
Quarter: 2010Q2

REPORT INFORMATION
  Report Type: 
  Country: None (occurrence: None)
  Receive Date: 20100409
  Receipt Date: 20100329
  Transmission Date: 20101027
  Serious: Yes (Other)
  Sender: FDA-Public Use
  Company Number: JP-PFIZER INC-2010024521

PATIENT
  Age: 71 Year
  Sex: Male

DRUGS (15)
  1. SEIBULE [Suspect]
     Indication: DIABETES MELLITUS
     Dosage: 150 MG, UNK
     Route: 048
     Dates: start: 20090828, end: 20090908
  2. SEIBULE [Suspect]
     Indication: TYPE 2 DIABETES MELLITUS
  3. PREDONINE [Concomitant]
     Indication: NEPHROTIC SYNDROME
     Dosage: UNK
     Route: 048
     Dates: start: 20090706
  4. PARIET [Concomitant]
     Indication: GASTROENTERITIS
     Dosage: 10 MG, UNK
     Route: 048
     Dates: start: 20090718, end: 20091226
  5. ZETIA [Concomitant]
     Indication: NEPHROTIC SYNDROME
     Dosage: 10 MG, UNK
     Route: 048
     Dates: start: 20090528
  6. ALFAROL [Concomitant]
     Indication: NEPHROTIC SYNDROME
     Dosage: UNK
     Route: 048
     Dates: start: 20090703, end: 20100220
  7. LIPITOR [Concomitant]
     Indication: NEPHROTIC SYNDROME
     Dosage: 5 MG, UNK
     Route: 048
     Dates: start: 20090714, end: 20091224
  8. MICARDIS [Concomitant]
     Indication: NEPHROTIC SYNDROME
     Dosage: 40 MG, UNK
     Route: 048
     Dates: start: 20090725, end: 20100108
  9. GASMOTIN [Concomitant]
     Indication: GASTROENTERITIS
     Dosage: 15 MG, UNK
     Route: 048
     Dates: start: 20090710, end: 20091226
  10. MUCOSTA [Concomitant]
     Indication: GASTROENTERITIS
     Dosage: 300 MG, UNK
     Route: 048
     Dates: start: 20090710, end: 20091226
  11. BIOFERMIN [Concomitant]
     Indication: GASTROENTERITIS
     Dosage: 3 G, UNK
     Route: 048
     Dates: start: 20090710, end: 20100108
  12. PERSANTIN-L [Concomitant]
     Indication: NEPHROTIC SYNDROME
     Dosage: 300 MG, UNK
     Route: 048
     Dates: start: 20090727
  13. COTRIM [Concomitant]
     Indication: NEPHROTIC SYNDROME
     Dosage: UNK
     Route: 048
     Dates: start: 20090703, end: 20100108
  14. PROMAC /JPN/ [Concomitant]
     Indication: GASTROENTERITIS
     Dosage: 150 MG, UNK
     Route: 048
     Dates: start: 20071226
  15. SOLU-MEDROL [Concomitant]
     Indication: NEPHROTIC SYNDROME
     Dosage: 1000 MG, UNK
     Route: 042
     Dates: start: 20090703, end: 20090705

REACTIONS (3)
  - FATIGUE [None]
  - LIVER DISORDER [None]
  - THIRST [None]
